FAERS Safety Report 11025271 (Version 1)
Quarter: 2015Q2

REPORT INFORMATION
  Report Type: Spontaneous
  Country: IT (occurrence: IT)
  Receive Date: 20150414
  Receipt Date: 20150414
  Transmission Date: 20150821
  Serious: Yes (Other)
  Sender: FDA-Public Use
  Company Number: IT-TEVA-553517ACC

PATIENT
  Age: 73 Year
  Sex: Female

DRUGS (1)
  1. PACLITAXEL TEVA ITALIA - TEVA ITALIA S.R.L. [Suspect]
     Active Substance: PACLITAXEL
     Indication: LUNG NEOPLASM MALIGNANT
     Dosage: 110 MG CYCLICAL; CONCENTRATE FOR SOLUTION FOR INFUSION
     Route: 042
     Dates: start: 20150331, end: 20150331

REACTIONS (5)
  - Back pain [Recovered/Resolved]
  - Asthenia [Recovered/Resolved]
  - Dyspnoea [Recovered/Resolved]
  - Hyperhidrosis [Recovered/Resolved]
  - Suffocation feeling [Recovered/Resolved]

NARRATIVE: CASE EVENT DATE: 20150331
